FAERS Safety Report 22211887 (Version 1)
Quarter: 2023Q2

REPORT INFORMATION
  Report Type: Spontaneous
  Country: AU (occurrence: AU)
  Receive Date: 20230414
  Receipt Date: 20230414
  Transmission Date: 20230721
  Serious: Yes (Other)
  Sender: FDA-Public Use
  Company Number: AU-SA-2023SA059831

PATIENT
  Age: 71 Year
  Sex: Male

DRUGS (4)
  1. LIBTAYO [Suspect]
     Active Substance: CEMIPLIMAB-RWLC
     Indication: Neoplasm malignant
     Dosage: UNK UNK, Q6W
     Dates: start: 202204
  2. LIBTAYO [Suspect]
     Active Substance: CEMIPLIMAB-RWLC
     Dosage: UNK UNK, Q3W
     Dates: start: 202204, end: 20230214
  3. COVID-19 VACCINE [Concomitant]
     Indication: Immunisation
     Dosage: UNK
  4. MODERNA COVID-19 VACCINE [Concomitant]
     Active Substance: ELASOMERAN
     Indication: Product used for unknown indication
     Dosage: UNK

REACTIONS (7)
  - White blood cell disorder [Unknown]
  - Neoplasm progression [Not Recovered/Not Resolved]
  - Speech disorder [Not Recovered/Not Resolved]
  - Eczema [Recovered/Resolved]
  - Gait disturbance [Not Recovered/Not Resolved]
  - Inappropriate schedule of product administration [Unknown]
  - Drug ineffective [Unknown]

NARRATIVE: CASE EVENT DATE: 20220401
